FAERS Safety Report 5979577-0 (Version None)
Quarter: 2008Q4

REPORT INFORMATION
  Report Type: 
  Country: None (occurrence: None)
  Receive Date: 20081204
  Receipt Date: 20081126
  Transmission Date: 20090506
  Serious: Yes (Other)
  Sender: FDA-Public Use
  Company Number: CA-AMGEN-KDL305013

PATIENT
  Sex: Male
  Weight: 106.7 kg

DRUGS (15)
  1. ENBREL [Suspect]
     Indication: ANKYLOSING SPONDYLITIS
     Route: 058
     Dates: start: 20080201, end: 20080901
  2. AMIODARONE HCL [Concomitant]
  3. METOPROLOL TARTRATE [Concomitant]
  4. ENALAPRIL MALEATE [Concomitant]
  5. VALSARTAN [Concomitant]
  6. FUROSEMIDE [Concomitant]
  7. ROSUVASTATIN [Concomitant]
  8. CLOPIDOGREL [Concomitant]
  9. CELEXA [Concomitant]
  10. LORAZEPAM [Concomitant]
  11. SLOW-K [Concomitant]
  12. MULTI-VITAMINS [Concomitant]
  13. COENZYME Q10 [Concomitant]
  14. CELEBREX [Concomitant]
     Dates: end: 20081001
  15. TYLENOL (CAPLET) [Concomitant]

REACTIONS (17)
  - ANKYLOSING SPONDYLITIS [None]
  - ARRHYTHMIA [None]
  - ATRIOVENTRICULAR BLOCK FIRST DEGREE [None]
  - DEFAECATION URGENCY [None]
  - DYSPNOEA [None]
  - EJECTION FRACTION DECREASED [None]
  - FEELING HOT [None]
  - MICTURITION URGENCY [None]
  - MUSCLE SPASMS [None]
  - MYOCARDIAL INFARCTION [None]
  - OEDEMA PERIPHERAL [None]
  - PARAESTHESIA [None]
  - RENAL FAILURE [None]
  - SYNCOPE [None]
  - THERAPEUTIC RESPONSE DECREASED [None]
  - WEIGHT DECREASED [None]
  - WEIGHT INCREASED [None]
